FAERS Safety Report 9731094 (Version 1)
Quarter: 2013Q4

REPORT INFORMATION
  Report Type: Spontaneous
  Country: GB (occurrence: GB)
  Receive Date: 20131205
  Receipt Date: 20131205
  Transmission Date: 20140711
  Serious: Yes (Hospitalization)
  Sender: FDA-Public Use
  Company Number: GB-BEH-2013039291

PATIENT
  Sex: Male

DRUGS (6)
  1. IVIG [Suspect]
     Indication: COMPLEX REGIONAL PAIN SYNDROME
     Dosage: 0.5G/KG
     Route: 042
  2. PARACETAMOL [Concomitant]
  3. AMITRIPTYLINE [Concomitant]
  4. MST [Concomitant]
  5. IBUPROFEN [Concomitant]
  6. GABAPENTIN [Concomitant]

REACTIONS (2)
  - Dyspnoea [Unknown]
  - Drug ineffective for unapproved indication [Unknown]
